FAERS Safety Report 4805632-4 (Version None)
Quarter: 2005Q4

REPORT INFORMATION
  Report Type: 
  Country: None (occurrence: None)
  Receive Date: 20051021
  Receipt Date: 20050810
  Transmission Date: 20060501
  Serious: Yes (Hospitalization)
  Sender: FDA-Public Use
  Company Number: GB-BRISTOL-MYERS SQUIBB COMPANY-13078233

PATIENT
  Age: 69 Year
  Sex: Male
  Weight: 66 kg

DRUGS (5)
  1. APROVEL [Suspect]
     Indication: BLOOD PRESSURE
     Route: 048
     Dates: start: 20040319, end: 20050705
  2. ASASANTIN RETARD [Interacting]
     Indication: PROPHYLAXIS
     Route: 048
     Dates: start: 20050412
  3. ADALAT CC [Concomitant]
     Indication: HYPERTENSION
     Dates: start: 20020513
  4. ATORVASTATIN [Concomitant]
     Indication: BLOOD CHOLESTEROL INCREASED
     Dates: start: 19991110
  5. BENDROFLUMETHIAZIDE [Concomitant]
     Indication: HYPERTENSION
     Route: 048
     Dates: start: 20040824

REACTIONS (5)
  - ABDOMINAL PAIN LOWER [None]
  - ARTHRALGIA [None]
  - DRUG INTERACTION [None]
  - NAUSEA [None]
  - RENAL FAILURE [None]
